FAERS Safety Report 23653177 (Version 1)
Quarter: 2024Q1

REPORT INFORMATION
  Report Type: Spontaneous
  Country: US (occurrence: US)
  Receive Date: 20240320
  Receipt Date: 20240320
  Transmission Date: 20240410
  Serious: No
  Sender: FDA-Public Use
  Company Number: US-PFIZER INC-PV202400037435

PATIENT
  Age: 55 Year
  Sex: Female

DRUGS (3)
  1. IBRANCE [Suspect]
     Active Substance: PALBOCICLIB
     Dosage: 100 MG, CYCLIC, Q DAY FOR 21 DAYS THEN 7 DAYS OFF
     Route: 048
  2. LETROZOLE [Concomitant]
     Active Substance: LETROZOLE
  3. ONDANSETRON [Concomitant]
     Active Substance: ONDANSETRON
     Indication: Nausea
     Dosage: 8 MG,EVERY 8 HOURS AS NEEDED
     Route: 048

REACTIONS (2)
  - Diarrhoea [Unknown]
  - Weight decreased [Unknown]
